FAERS Safety Report 17984920 (Version 1)
Quarter: 2020Q3

REPORT INFORMATION
  Report Type: Spontaneous
  Country: CL (occurrence: CL)
  Receive Date: 20200706
  Receipt Date: 20200706
  Transmission Date: 20201103
  Serious: Yes (Hospitalization)
  Sender: FDA-Public Use
  Company Number: CL-MYLANLABS-2019M1125872

PATIENT
  Age: 47 Year
  Sex: Male

DRUGS (2)
  1. LEPONEX [Suspect]
     Active Substance: CLOZAPINE
     Indication: PRODUCT USED FOR UNKNOWN INDICATION
     Dosage: 350 MILLIGRAM, QD
     Route: 048
  2. LEPONEX [Suspect]
     Active Substance: CLOZAPINE
     Dosage: 200 MILLIGRAM, QD
     Route: 048

REACTIONS (2)
  - Hospitalisation [Recovered/Resolved]
  - Sedation [Unknown]

NARRATIVE: CASE EVENT DATE: 2019
